FAERS Safety Report 10196422 (Version 3)
Quarter: 2014Q3

REPORT INFORMATION
  Report Type: Spontaneous
  Country: FR (occurrence: FR)
  Receive Date: 20140527
  Receipt Date: 20140811
  Transmission Date: 20150326
  Serious: Yes (Other)
  Sender: FDA-Public Use
  Company Number: FR-JNJFOC-20140510209

PATIENT
  Age: 71 Year
  Sex: Female

DRUGS (4)
  1. ZOPICLONE [Concomitant]
     Active Substance: ZOPICLONE
     Indication: INSOMNIA
     Route: 048
     Dates: start: 20140416
  2. XEPLION [Suspect]
     Active Substance: PALIPERIDONE PALMITATE
     Indication: DELIRIUM
     Route: 030
     Dates: start: 20140329
  3. ALPRAZOLAM. [Concomitant]
     Active Substance: ALPRAZOLAM
     Indication: ANXIETY
     Route: 048
     Dates: start: 20140416
  4. XEPLION [Suspect]
     Active Substance: PALIPERIDONE PALMITATE
     Indication: DELIRIUM
     Route: 030
     Dates: end: 20140507

REACTIONS (4)
  - Extrapyramidal disorder [Not Recovered/Not Resolved]
  - Trismus [Not Recovered/Not Resolved]
  - Thinking abnormal [Not Recovered/Not Resolved]
  - Depression [Not Recovered/Not Resolved]

NARRATIVE: CASE EVENT DATE: 20140420
